FAERS Safety Report 11629505 (Version 2)
Quarter: 2015Q4

REPORT INFORMATION
  Report Type: Spontaneous
  Country: US (occurrence: US)
  Receive Date: 20151014
  Receipt Date: 20151109
  Transmission Date: 20160304
  Serious: No
  Sender: FDA-Public Use
  Company Number: US-BAYER-2015-428658

PATIENT
  Sex: Male
  Weight: 111 kg

DRUGS (3)
  1. XOFIGO [Suspect]
     Active Substance: RADIUM RA-223 DICHLORIDE
     Dosage: 20.0 MCI, UNK
     Dates: start: 20150925, end: 20150925
  2. XOFIGO [Suspect]
     Active Substance: RADIUM RA-223 DICHLORIDE
     Dosage: 144.00 MCI, UNK
     Dates: start: 20151022, end: 20151022
  3. XOFIGO [Suspect]
     Active Substance: RADIUM RA-223 DICHLORIDE
     Dosage: 91.3 MCI, UNK
     Dates: start: 20150922, end: 20150922

REACTIONS (1)
  - Product use issue [None]

NARRATIVE: CASE EVENT DATE: 20150922
